FAERS Safety Report 13153187 (Version 4)
Quarter: 2017Q4

REPORT INFORMATION
  Report Type: Spontaneous
  Country: CA (occurrence: CA)
  Receive Date: 20170126
  Receipt Date: 20171101
  Transmission Date: 20180320
  Serious: Yes (Other)
  Sender: FDA-Public Use
  Company Number: CA-BRISTOL-MYERS SQUIBB COMPANY-BMS-2017-005384

PATIENT
  Age: 51 Year
  Sex: Female

DRUGS (13)
  1. ARAVA [Suspect]
     Active Substance: LEFLUNOMIDE
     Indication: PRODUCT USED FOR UNKNOWN INDICATION
     Dosage: 10 MG, QD
     Route: 065
     Dates: start: 2005
  2. METHOTREXATE SODIUM. [Suspect]
     Active Substance: METHOTREXATE SODIUM
     Indication: PRODUCT USED FOR UNKNOWN INDICATION
     Dosage: 25 MG, QWK
     Route: 065
     Dates: start: 1998
  3. XELJANZ [Concomitant]
     Active Substance: TOFACITINIB CITRATE
     Indication: RHEUMATOID ARTHRITIS
     Dosage: 50 MG, BID
     Route: 048
     Dates: start: 20160324
  4. ORENCIA [Suspect]
     Active Substance: ABATACEPT
     Indication: RHEUMATOID ARTHRITIS
     Dosage: 750 MG, QMO
     Route: 042
     Dates: start: 2014
  5. ACTEMRA [Suspect]
     Active Substance: TOCILIZUMAB
     Indication: PRODUCT USED FOR UNKNOWN INDICATION
     Dosage: 4 MG/KG, UNK
     Route: 065
     Dates: start: 2013
  6. ENBREL [Suspect]
     Active Substance: ETANERCEPT
     Indication: RHEUMATOID ARTHRITIS
     Dosage: 50 MG, QWK
     Route: 058
     Dates: start: 200608
  7. PLAQUENIL                          /00072602/ [Suspect]
     Active Substance: HYDROXYCHLOROQUINE DIPHOSPHATE
     Indication: PRODUCT USED FOR UNKNOWN INDICATION
     Dosage: 200 MG, BID
     Route: 065
     Dates: start: 1998
  8. PREDNISONE. [Concomitant]
     Active Substance: PREDNISONE
     Indication: PRODUCT USED FOR UNKNOWN INDICATION
     Dosage: 50 MG, QD
     Route: 065
  9. HUMIRA [Suspect]
     Active Substance: ADALIMUMAB
     Indication: PRODUCT USED FOR UNKNOWN INDICATION
     Dosage: 40 MG, Q2WK
     Route: 058
     Dates: start: 2008
  10. REMICADE [Suspect]
     Active Substance: INFLIXIMAB
     Indication: PRODUCT USED FOR UNKNOWN INDICATION
     Dosage: UNK
     Route: 042
  11. SIMPONI [Suspect]
     Active Substance: GOLIMUMAB
     Indication: RHEUMATOID ARTHRITIS
     Dosage: 50 MG, QMO
     Route: 058
     Dates: start: 200912
  12. RITUXAN [Suspect]
     Active Substance: RITUXIMAB
     Indication: PRODUCT USED FOR UNKNOWN INDICATION
     Dosage: 1 G, UNK
     Route: 042
     Dates: start: 2012
  13. PREVACID [Concomitant]
     Active Substance: LANSOPRAZOLE
     Indication: PRODUCT USED FOR UNKNOWN INDICATION
     Dosage: UNK
     Route: 065

REACTIONS (25)
  - C-reactive protein abnormal [Unknown]
  - Gingival bleeding [Recovered/Resolved]
  - Infection [Recovered/Resolved]
  - Syncope [Recovered/Resolved]
  - Bone erosion [Unknown]
  - Cough [Unknown]
  - Musculoskeletal stiffness [Unknown]
  - Off label use [Unknown]
  - Arthritis [Unknown]
  - Dyspnoea [Recovered/Resolved]
  - Gait disturbance [Unknown]
  - Headache [Unknown]
  - Urticaria [Recovered/Resolved]
  - Abdominal discomfort [Unknown]
  - Loss of personal independence in daily activities [Unknown]
  - Diarrhoea [Recovered/Resolved]
  - Mouth haemorrhage [Not Recovered/Not Resolved]
  - Nausea [Recovering/Resolving]
  - Rash [Unknown]
  - Eye haemorrhage [Unknown]
  - Peripheral swelling [Unknown]
  - Drug ineffective [Recovered/Resolved]
  - Liver function test increased [Unknown]
  - Asthenia [Recovering/Resolving]
  - Joint swelling [Unknown]

NARRATIVE: CASE EVENT DATE: 20160315
